FAERS Safety Report 20312452 (Version 1)
Quarter: 2022Q1

REPORT INFORMATION
  Report Type: Spontaneous
  Country: US (occurrence: None)
  Receive Date: 20220107
  Receipt Date: 20220107
  Transmission Date: 20220424
  Serious: Yes (Other)
  Sender: FDA-Public Use
  Company Number: None

PATIENT
  Age: 28 Year
  Sex: Female
  Weight: 63 kg

DRUGS (1)
  1. REGEN-COV [Suspect]
     Active Substance: CASIRIVIMAB\IMDEVIMAB
     Indication: Coronavirus pneumonia
     Route: 042

REACTIONS (4)
  - Infusion related reaction [None]
  - Flushing [None]
  - Chest discomfort [None]
  - Exposure during pregnancy [None]

NARRATIVE: CASE EVENT DATE: 20220107
